FAERS Safety Report 12211647 (Version 1)
Quarter: 2016Q1

REPORT INFORMATION
  Report Type: Spontaneous
  Country: IT (occurrence: IT)
  Receive Date: 20160325
  Receipt Date: 20160325
  Transmission Date: 20160526
  Serious: Yes (Hospitalization)
  Sender: FDA-Public Use
  Company Number: IT-BAYER-2016-054412

PATIENT
  Age: 69 Year
  Sex: Male
  Weight: 110 kg

DRUGS (9)
  1. STILNOX [Concomitant]
     Active Substance: ZOLPIDEM TARTRATE
     Indication: BIPOLAR DISORDER
     Route: 048
  2. SERENASE [HALOPERIDOL] [Concomitant]
     Indication: BIPOLAR DISORDER
     Dosage: UNK
     Route: 048
  3. CARBOLITHIUM [Suspect]
     Active Substance: LITHIUM CARBONATE
     Indication: DRUG ABUSE
     Dosage: 1200 MG, ONCE
     Route: 048
     Dates: start: 20160218, end: 20160218
  4. CARDIOASPIRIN [Suspect]
     Active Substance: ASPIRIN
     Indication: DRUG ABUSE
     Dosage: 600 MG, ONCE
     Route: 048
     Dates: start: 20160218, end: 20160218
  5. DEPAKIN [Suspect]
     Active Substance: VALPROATE SODIUM
     Indication: DRUG ABUSE
     Dosage: 1400 MG, ONCE
     Route: 048
     Dates: start: 20160218, end: 20160218
  6. AKINETON [Concomitant]
     Active Substance: BIPERIDEN HYDROCHLORIDE
     Indication: BIPOLAR DISORDER
     Route: 048
  7. ZYPREXA [Suspect]
     Active Substance: OLANZAPINE
     Indication: DRUG ABUSE
     Dosage: 10 MG, ONCE
     Route: 048
     Dates: start: 20160218, end: 20160218
  8. TAVOR [LORAZEPAM] [Concomitant]
     Active Substance: LORAZEPAM
     Indication: BIPOLAR DISORDER
     Dosage: UNK
     Route: 048
  9. VALDORM [Concomitant]
     Active Substance: VALERIAN
     Indication: BIPOLAR DISORDER
     Route: 048

REACTIONS (4)
  - Drug abuse [Recovering/Resolving]
  - Poverty of speech [Recovering/Resolving]
  - Toxicity to various agents [Recovering/Resolving]
  - Sopor [Recovering/Resolving]

NARRATIVE: CASE EVENT DATE: 20160218
